FAERS Safety Report 6296458-6 (Version None)
Quarter: 2009Q3

REPORT INFORMATION
  Report Type: 
  Country: None (occurrence: None)
  Receive Date: 20090804
  Receipt Date: 20090727
  Transmission Date: 20100115
  Serious: Yes (Life-Threatening, Hospitalization, Other)
  Sender: FDA-Public Use
  Company Number: A0781292A

PATIENT
  Age: 41 Year
  Sex: Female
  Weight: 64.5 kg

DRUGS (2)
  1. TYKERB [Suspect]
     Dosage: 1250MG PER DAY
     Route: 048
     Dates: start: 20090401, end: 20090717
  2. XELODA [Concomitant]
     Dosage: 1500MG TWICE PER DAY
     Route: 048
     Dates: start: 20090504, end: 20090717

REACTIONS (2)
  - CNS VENTRICULITIS [None]
  - CONVULSION [None]
